FAERS Safety Report 6701548-7 (Version None)
Quarter: 2010Q2

REPORT INFORMATION
  Report Type: 
  Country: None (occurrence: None)
  Receive Date: 20100427
  Receipt Date: 20100415
  Transmission Date: 20101027
  Serious: Yes (Hospitalization)
  Sender: FDA-Public Use
  Company Number: 010380

PATIENT
  Sex: Female

DRUGS (3)
  1. CIMZIA [Suspect]
     Dosage: SUBCUTANEOUS
     Route: 058
     Dates: start: 20100415
  2. ASACOL [Concomitant]
  3. CRESTOR [Concomitant]

REACTIONS (3)
  - FATIGUE [None]
  - LETHARGY [None]
  - TACHYCARDIA [None]
